FAERS Safety Report 8828443 (Version 1)
Quarter: 2012Q4

REPORT INFORMATION
  Report Type: 
  Country: JP (occurrence: JP)
  Receive Date: 20121005
  Receipt Date: 20121005
  Transmission Date: 20130627
  Serious: Yes (Hospitalization)
  Sender: FDA-Public Use
  Company Number: JP-ELI_LILLY_AND_COMPANY-JP201208008492

PATIENT
  Age: 78 Year
  Sex: Female
  Weight: 53 kg

DRUGS (8)
  1. ALIMTA [Suspect]
     Indication: LUNG ADENOCARCINOMA STAGE III
     Dosage: 725 mg, UNK
     Route: 042
     Dates: start: 20120706, end: 20120706
  2. ALIMTA [Suspect]
     Dosage: 649 mg, UNK
     Route: 042
     Dates: start: 20120806
  3. RINDERON [Concomitant]
     Dosage: 0.25 mg, qd
     Route: 048
     Dates: start: 20120614
  4. PANVITAN [Concomitant]
     Dosage: UNK
     Route: 048
     Dates: start: 20120620
  5. FRESMIN S [Concomitant]
     Dosage: UNK
     Route: 030
     Dates: start: 20120608
  6. MEDICON [Concomitant]
     Dosage: 15 mg, tid
     Route: 048
     Dates: start: 20120620
  7. BIOFERMIN [Concomitant]
     Dosage: 1 g, tid
     Route: 048
     Dates: start: 20120307
  8. MAGMITT [Concomitant]
     Dosage: 330 mg, tid
     Route: 048
     Dates: start: 20120720

REACTIONS (5)
  - Hypoxia [Recovering/Resolving]
  - Pyrexia [Recovering/Resolving]
  - Pneumonitis [Recovering/Resolving]
  - Computerised tomogram abnormal [Unknown]
  - Malaise [Recovering/Resolving]
